FAERS Safety Report 17871362 (Version 1)
Quarter: 2020Q2

REPORT INFORMATION
  Report Type: Spontaneous
  Country: US (occurrence: US)
  Receive Date: 20200606
  Receipt Date: 20200606
  Transmission Date: 20200714
  Serious: Yes (Hospitalization)
  Sender: FDA-Public Use
  Company Number: None

PATIENT
  Sex: Female
  Weight: 22.4 kg

DRUGS (3)
  1. ETOPOSIDE (VP-16) [Suspect]
     Active Substance: ETOPOSIDE
  2. MELPHALAN. [Suspect]
     Active Substance: MELPHALAN
     Dates: start: 20200516
  3. CARBOPLATIN. [Suspect]
     Active Substance: CARBOPLATIN

REACTIONS (21)
  - Pneumonia [None]
  - Extrasystoles [None]
  - Tachycardia [None]
  - Hypoxia [None]
  - Kawasaki^s disease [None]
  - Neutropenia [None]
  - Dehydration [None]
  - Torsade de pointes [None]
  - Hyperbilirubinaemia [None]
  - Infection [None]
  - Gastrointestinal haemorrhage [None]
  - Venoocclusive disease [None]
  - Mucosal inflammation [None]
  - Platelet count decreased [None]
  - Nausea [None]
  - Anaemia [None]
  - Diarrhoea [None]
  - Hypotension [None]
  - Sepsis [None]
  - Shock [None]
  - Ventricular tachycardia [None]

NARRATIVE: CASE EVENT DATE: 20200527
